FAERS Safety Report 9816120 (Version 1)
Quarter: 2014Q1

REPORT INFORMATION
  Report Type: Report from Study
  Country: US (occurrence: US)
  Receive Date: 20140114
  Receipt Date: 20140114
  Transmission Date: 20141002
  Serious: Yes (Other)
  Sender: FDA-Public Use
  Company Number: US-JNJFOC-20140106289

PATIENT
  Sex: Male
  Weight: 109.32 kg

DRUGS (1)
  1. SIMPONI ARIA [Suspect]
     Indication: RHEUMATOID ARTHRITIS
     Route: 042

REACTIONS (5)
  - Foot operation [Unknown]
  - Post procedural infection [Unknown]
  - Wheezing [Unknown]
  - Palpitations [Unknown]
  - Dyspnoea [Unknown]
